FAERS Safety Report 6388764-1 (Version None)
Quarter: 2009Q4

REPORT INFORMATION
  Report Type: 
  Country: None (occurrence: None)
  Receive Date: 20091005
  Receipt Date: 20090921
  Transmission Date: 20100525
  Serious: Yes (Other)
  Sender: FDA-Public Use
  Company Number: US-ELI_LILLY_AND_COMPANY-US200909002909

PATIENT
  Age: 64 Year
  Sex: Female
  Weight: 86.168 kg

DRUGS (8)
  1. CYMBALTA [Suspect]
     Indication: MAJOR DEPRESSION
     Dosage: 60 MG, UNK
     Route: 048
     Dates: start: 20090612, end: 20090904
  2. LEVOTHYROXINE SODIUM [Concomitant]
     Indication: HYPOTHYROIDISM
  3. ALTACE [Concomitant]
     Indication: HYPERTENSION
  4. ASPIRIN [Concomitant]
  5. SIMVASTATIN [Concomitant]
  6. FLUTICASONE [Concomitant]
     Indication: MULTIPLE ALLERGIES
     Route: 045
  7. LEVEMIR [Concomitant]
     Indication: DIABETES MELLITUS
     Dates: start: 20081012
  8. JANUVIA [Concomitant]
     Indication: DIABETES MELLITUS

REACTIONS (3)
  - BLOOD GLUCOSE INCREASED [None]
  - HEPATITIS [None]
  - RESTLESS LEGS SYNDROME [None]
